FAERS Safety Report 13301830 (Version 1)
Quarter: 2017Q1

REPORT INFORMATION
  Report Type: Spontaneous
  Country: US (occurrence: US)
  Receive Date: 20170306
  Receipt Date: 20170306
  Transmission Date: 20170428
  Serious: Yes (Other)
  Sender: FDA-Public Use
  Company Number: None

PATIENT
  Age: 70 Year
  Sex: Male
  Weight: 93.5 kg

DRUGS (1)
  1. PROPARACAINE [Suspect]
     Active Substance: PROPARACAINE
     Indication: SURGERY
     Dates: start: 20170216, end: 20170216

REACTIONS (4)
  - Vomiting [None]
  - Syncope [None]
  - Nausea [None]
  - Bradycardia [None]

NARRATIVE: CASE EVENT DATE: 20170216
